FAERS Safety Report 17032007 (Version 1)
Quarter: 2019Q4

REPORT INFORMATION
  Report Type: Spontaneous
  Country: US (occurrence: US)
  Receive Date: 20191114
  Receipt Date: 20191114
  Transmission Date: 20200122
  Serious: Yes (Hospitalization)
  Sender: FDA-Public Use
  Company Number: US-VERTEX PHARMACEUTICALS-2019-010914

PATIENT
  Age: 25 Year
  Sex: Female

DRUGS (5)
  1. STERILE WATER [Concomitant]
     Active Substance: WATER
  2. ORKAMBI [Suspect]
     Active Substance: IVACAFTOR\LUMACAFTOR
     Indication: CYSTIC FIBROSIS
     Dosage: (200MG/ 125MG) 2 DOSAGE FORM, BID
     Route: 048
     Dates: start: 20170819
  3. DECLOFENAC [Concomitant]
     Active Substance: DICLOFENAC SODIUM
  4. DRONABINOL. [Concomitant]
     Active Substance: DRONABINOL
  5. TRANEXAMIC ACID. [Concomitant]
     Active Substance: TRANEXAMIC ACID

REACTIONS (1)
  - Infective pulmonary exacerbation of cystic fibrosis [Unknown]

NARRATIVE: CASE EVENT DATE: 20191031
